FAERS Safety Report 10468873 (Version 1)
Quarter: 2014Q3

REPORT INFORMATION
  Report Type: Spontaneous
  Country: GB (occurrence: GB)
  Receive Date: 20140923
  Receipt Date: 20140923
  Transmission Date: 20150326
  Serious: Yes (Other)
  Sender: FDA-Public Use
  Company Number: GB-MERCK-1409GBR008563

PATIENT
  Age: 46 Year
  Sex: Female

DRUGS (1)
  1. MOMETASONE FUROATE. [Suspect]
     Active Substance: MOMETASONE FUROATE
     Indication: NASAL POLYPS
     Dosage: AS DIRECTED BY MY DOCTOR.
     Route: 045

REACTIONS (4)
  - Muscular weakness [Not Recovered/Not Resolved]
  - Condition aggravated [Unknown]
  - Infection susceptibility increased [Not Recovered/Not Resolved]
  - Dry eye [Not Recovered/Not Resolved]
